FAERS Safety Report 4852225-9 (Version None)
Quarter: 2005Q4

REPORT INFORMATION
  Report Type: 
  Country: None (occurrence: None)
  Receive Date: 20051213
  Receipt Date: 20050705
  Transmission Date: 20060501
  Serious: Yes (Life-Threatening, Hospitalization)
  Sender: FDA-Public Use
  Company Number: DE-GILEAD-2005-0008483

PATIENT
  Sex: Male
  Weight: 60 kg

DRUGS (4)
  1. EMTRIVA [Suspect]
     Indication: HIV INFECTION
     Route: 048
     Dates: start: 20040524, end: 20050702
  2. VIREAD [Suspect]
     Indication: HIV INFECTION
     Route: 048
     Dates: start: 20040524, end: 20050702
  3. VIREAD [Suspect]
     Route: 048
     Dates: start: 20050923
  4. SUSTIVA [Suspect]
     Indication: HIV INFECTION
     Route: 048
     Dates: start: 20040524, end: 20050702

REACTIONS (16)
  - ALCOHOL WITHDRAWAL SYNDROME [None]
  - ASCITES [None]
  - BRAIN STEM SYNDROME [None]
  - CANDIDIASIS [None]
  - CHLAMYDIAL INFECTION [None]
  - DELIRIUM TREMENS [None]
  - DEPRESSION [None]
  - HYPOGLYCAEMIA [None]
  - ILEUS PARALYTIC [None]
  - KORSAKOFF'S PSYCHOSIS NON-ALCOHOLIC [None]
  - LACTIC ACIDOSIS [None]
  - LEGIONELLA INFECTION [None]
  - PANCREATITIS ACUTE [None]
  - PNEUMONIA [None]
  - STAPHYLOCOCCAL INFECTION [None]
  - STREPTOCOCCAL INFECTION [None]
